FAERS Safety Report 9291581 (Version 1)
Quarter: 2013Q2

REPORT INFORMATION
  Report Type: Spontaneous
  Country: IT (occurrence: IT)
  Receive Date: 20130515
  Receipt Date: 20130515
  Transmission Date: 20140414
  Serious: Yes (Other)
  Sender: FDA-Public Use
  Company Number: IT-MYLANLABS-2013S1009748

PATIENT
  Age: 56 Year
  Sex: Male

DRUGS (2)
  1. ARKOLAMYL [Suspect]
     Indication: CONDUCT DISORDER
     Route: 048
     Dates: start: 20130101, end: 20130317
  2. CARBAMAZEPINE [Concomitant]
     Indication: PRODUCT USED FOR UNKNOWN INDICATION

REACTIONS (3)
  - Aggression [Recovering/Resolving]
  - Agitation [Recovering/Resolving]
  - Psychiatric decompensation [Recovering/Resolving]
